FAERS Safety Report 12084301 (Version 1)
Quarter: 2016Q1

REPORT INFORMATION
  Report Type: Spontaneous
  Country: US (occurrence: None)
  Receive Date: 20160216
  Receipt Date: 20160216
  Transmission Date: 20160526
  Serious: No
  Sender: FDA-Public Use
  Company Number: None

PATIENT
  Age: 64 Year
  Sex: Male
  Weight: 81.65 kg

DRUGS (6)
  1. INSULIN [Concomitant]
     Active Substance: INSULIN NOS
  2. NIACIN. [Concomitant]
     Active Substance: NIACIN
  3. IRBESARTAN 300 MG SOLCO [Suspect]
     Active Substance: IRBESARTAN
     Indication: HYPERTENSION
     Route: 048
  4. IRBESARTAN 300 MG SOLCO [Suspect]
     Active Substance: IRBESARTAN
     Indication: DIABETIC NEPHROPATHY
     Route: 048
  5. ASPIRIN. [Concomitant]
     Active Substance: ASPIRIN
  6. LIPITOR [Concomitant]
     Active Substance: ATORVASTATIN CALCIUM

REACTIONS (3)
  - Wrong technique in product usage process [None]
  - Product physical issue [None]
  - Incorrect dose administered [None]

NARRATIVE: CASE EVENT DATE: 20150924
